FAERS Safety Report 6822510-X (Version None)
Quarter: 2010Q3

REPORT INFORMATION
  Report Type: 
  Country: None (occurrence: None)
  Receive Date: 20100708
  Receipt Date: 20100628
  Transmission Date: 20110219
  Serious: Yes (Other)
  Sender: FDA-Public Use
  Company Number: US-SANOFI-AVENTIS-2010SA037787

PATIENT
  Age: 40 Year
  Sex: Female
  Weight: 72.57 kg

DRUGS (4)
  1. LOVENOX [Suspect]
     Indication: THROMBOSIS PROPHYLAXIS
     Route: 065
     Dates: start: 20100218
  2. ALLERGY MEDICATION [Concomitant]
  3. PRENATAL VITAMINS [Concomitant]
  4. ASPIRIN [Concomitant]

REACTIONS (1)
  - ABORTION SPONTANEOUS [None]
